FAERS Safety Report 5098321-5 (Version None)
Quarter: 2006Q4

REPORT INFORMATION
  Report Type: 
  Country: None (occurrence: None)
  Receive Date: 20060906
  Receipt Date: 20050921
  Transmission Date: 20070319
  Serious: Yes (Other)
  Sender: FDA-Public Use
  Company Number: DE-BOEHRINGER INGELHEIM PHARMACEUTICALS, INC.-2005-DE-03939BY

PATIENT
  Sex: Male

DRUGS (4)
  1. KINZAL [Suspect]
     Indication: HYPERTENSION
     Route: 048
     Dates: start: 20050906, end: 20050915
  2. ZOLPIDEM TARTRATE [Concomitant]
     Route: 048
  3. ANAFRANIL [Concomitant]
     Indication: DEPRESSION
     Route: 048
     Dates: start: 19950101
  4. AGOPTON [Concomitant]
     Indication: GASTROOESOPHAGEAL REFLUX DISEASE
     Route: 065

REACTIONS (3)
  - ANXIETY [None]
  - PRURITUS GENERALISED [None]
  - RASH [None]
